FAERS Safety Report 5487969-1 (Version None)
Quarter: 2007Q4

REPORT INFORMATION
  Report Type: 
  Country: None (occurrence: None)
  Receive Date: 20071001
  Receipt Date: 20070514
  Transmission Date: 20080405
  Serious: Yes (Other)
  Sender: FDA-Public Use
  Company Number: 200711012BWH

PATIENT
  Age: 62 Year
  Sex: Female

DRUGS (12)
  1. CIPRO [Suspect]
     Indication: CYSTITIS INTERSTITIAL
     Dosage: 500 MG, BID, ORAL; BID, ORAL; 500 MG, BID, ORAL; BID, ORAL
     Route: 048
     Dates: start: 19950622
  2. CIPRO [Suspect]
     Indication: CYSTITIS NONINFECTIVE
     Dosage: 500 MG, BID, ORAL; BID, ORAL; 500 MG, BID, ORAL; BID, ORAL
     Route: 048
     Dates: start: 19950622
  3. CIPRO [Suspect]
     Indication: DYSURIA
     Dosage: 500 MG, BID, ORAL; BID, ORAL; 500 MG, BID, ORAL; BID, ORAL
     Route: 048
     Dates: start: 19950622
  4. CIPRO [Suspect]
     Indication: CYSTITIS INTERSTITIAL
     Dosage: 500 MG, BID, ORAL; BID, ORAL; 500 MG, BID, ORAL; BID, ORAL
     Route: 048
     Dates: start: 19960321
  5. CIPRO [Suspect]
     Indication: CYSTITIS NONINFECTIVE
     Dosage: 500 MG, BID, ORAL; BID, ORAL; 500 MG, BID, ORAL; BID, ORAL
     Route: 048
     Dates: start: 19960321
  6. CIPRO [Suspect]
     Indication: DYSURIA
     Dosage: 500 MG, BID, ORAL; BID, ORAL; 500 MG, BID, ORAL; BID, ORAL
     Route: 048
     Dates: start: 19960321
  7. CIPRO [Suspect]
     Indication: CYSTITIS INTERSTITIAL
     Dosage: 500 MG, BID, ORAL; BID, ORAL; 500 MG, BID, ORAL; BID, ORAL
     Route: 048
     Dates: start: 19960801
  8. CIPRO [Suspect]
     Indication: CYSTITIS NONINFECTIVE
     Dosage: 500 MG, BID, ORAL; BID, ORAL; 500 MG, BID, ORAL; BID, ORAL
     Route: 048
     Dates: start: 19960801
  9. CIPRO [Suspect]
     Indication: DYSURIA
     Dosage: 500 MG, BID, ORAL; BID, ORAL; 500 MG, BID, ORAL; BID, ORAL
     Route: 048
     Dates: start: 19960801
  10. CIPRO [Suspect]
     Indication: CYSTITIS INTERSTITIAL
     Dosage: 500 MG, BID, ORAL; BID, ORAL; 500 MG, BID, ORAL; BID, ORAL
     Route: 048
     Dates: start: 19961021
  11. CIPRO [Suspect]
     Indication: CYSTITIS NONINFECTIVE
     Dosage: 500 MG, BID, ORAL; BID, ORAL; 500 MG, BID, ORAL; BID, ORAL
     Route: 048
     Dates: start: 19961021
  12. CIPRO [Suspect]
     Indication: DYSURIA
     Dosage: 500 MG, BID, ORAL; BID, ORAL; 500 MG, BID, ORAL; BID, ORAL
     Route: 048
     Dates: start: 19961021

REACTIONS (3)
  - DEAFNESS [None]
  - HEARING IMPAIRED [None]
  - TINNITUS [None]
